FAERS Safety Report 7586512-0 (Version None)
Quarter: 2011Q2

REPORT INFORMATION
  Report Type: 
  Country: None (occurrence: None)
  Receive Date: 20110630
  Receipt Date: 20110630
  Transmission Date: 20111010
  Serious: No
  Sender: FDA-Public Use
  Company Number: None

PATIENT
  Age: 89 Year
  Sex: Female

DRUGS (1)
  1. LUCENTIS [Suspect]
     Dosage: 0.5 MG 4WKS INTRAVITREAL
     Dates: start: 20070130

REACTIONS (1)
  - ENDOPHTHALMITIS [None]
